FAERS Safety Report 14154392 (Version 1)
Quarter: 2017Q4

REPORT INFORMATION
  Report Type: Spontaneous
  Country: AT (occurrence: AT)
  Receive Date: 20171102
  Receipt Date: 20171102
  Transmission Date: 20180321
  Serious: Yes (Life-Threatening)
  Sender: FDA-Public Use
  Company Number: AT-PFIZER INC-2017466576

PATIENT
  Age: 53 Year
  Sex: Female

DRUGS (1)
  1. UNASYN [Suspect]
     Active Substance: AMPICILLIN SODIUM\SULBACTAM SODIUM
     Indication: GASTRIC BYPASS
     Dosage: UNK
     Route: 042
     Dates: start: 20170816, end: 20170816

REACTIONS (2)
  - Laryngospasm [Recovered/Resolved]
  - Urticaria [Recovered/Resolved]

NARRATIVE: CASE EVENT DATE: 20170816
